FAERS Safety Report 13315808 (Version 1)
Quarter: 2017Q1

REPORT INFORMATION
  Report Type: Spontaneous
  Country: GB (occurrence: GB)
  Receive Date: 20170310
  Receipt Date: 20170310
  Transmission Date: 20170428
  Serious: Yes (Other)
  Sender: FDA-Public Use
  Company Number: GB-CIPLA LTD.-2017GB02799

PATIENT

DRUGS (13)
  1. CLOBETASONE BUTYRATE [Concomitant]
     Active Substance: CLOBETASONE BUTYRATE
     Dosage: UNK, APPLY 1-2 TIMES/DAY
     Route: 065
     Dates: start: 20170127
  2. CLOTRIMAZOLE. [Concomitant]
     Active Substance: CLOTRIMAZOLE
     Dosage: UNK, USE AS DIRECTED
     Route: 065
     Dates: start: 20161223, end: 20161224
  3. ESCITALOPRAM [Suspect]
     Active Substance: ESCITALOPRAM OXALATE
     Dosage: UNK
     Route: 065
     Dates: start: 20161117
  4. HYDROCORTISONE. [Concomitant]
     Active Substance: HYDROCORTISONE
     Dosage: 1 DF, BID
     Route: 065
     Dates: start: 20170105, end: 20170119
  5. LACTULOSE. [Concomitant]
     Active Substance: LACTULOSE
     Dosage: 15 ML, BID
     Route: 065
     Dates: start: 20161117, end: 20161220
  6. CANESTEN [Concomitant]
     Active Substance: CLOTRIMAZOLE
     Dosage: 1 DF, BID
     Route: 065
     Dates: start: 20170105, end: 20170105
  7. OMEPRAZOLE. [Concomitant]
     Active Substance: OMEPRAZOLE
     Indication: DYSPEPSIA
     Dosage: 1 DF, QD
     Route: 065
     Dates: start: 20161117
  8. CITALOPRAM [Concomitant]
     Active Substance: CITALOPRAM HYDROBROMIDE
     Dosage: 1 DF, QD
     Route: 065
     Dates: start: 20170116
  9. NAPROXEN. [Concomitant]
     Active Substance: NAPROXEN
     Dosage: 1 DF, MAXIMUM THREE TIMES DAILY
     Route: 065
     Dates: start: 20161117, end: 20170203
  10. QUETIAPINE. [Concomitant]
     Active Substance: QUETIAPINE
     Dosage: 1 DF, QD, NIGHT
     Route: 065
     Dates: start: 20161117
  11. PARACETAMOL [Concomitant]
     Active Substance: ACETAMINOPHEN
     Dosage: UNK, ONE TO TWO TO BE TAKEN FOUR TIMES A DAY
     Route: 065
     Dates: start: 20161117
  12. ZEROBASE [Concomitant]
     Dosage: UNK, APPLY LIBERALLY
     Route: 065
     Dates: start: 20170116, end: 20170123
  13. ZOPICLONE [Concomitant]
     Active Substance: ZOPICLONE
     Indication: SLEEP DISORDER
     Dosage: UNK, TAKE HALF TO ONE TABLET AT NIGHT
     Route: 065
     Dates: start: 20161117

REACTIONS (3)
  - Skin exfoliation [Recovered/Resolved]
  - Skin fissures [Recovered/Resolved]
  - Blister [Recovered/Resolved]

NARRATIVE: CASE EVENT DATE: 20170109
